FAERS Safety Report 8184148 (Version 8)
Quarter: 2013Q4

REPORT INFORMATION
  Report Type: Report from Study
  Country: US (occurrence: US)
  Receive Date: 20111017
  Receipt Date: 20131210
  Transmission Date: 20140711
  Serious: Yes (Other)
  Sender: FDA-Public Use
  Company Number: US-ROCHE-GNE320345

PATIENT
  Sex: Female
  Weight: 74.46 kg

DRUGS (8)
  1. OMALIZUMAB [Suspect]
     Indication: ASTHMA
     Route: 065
     Dates: start: 20100606, end: 201101
  2. DULCOLAX TABLETS [Concomitant]
     Indication: HAEMORRHOIDS
  3. VENTOLIN [Concomitant]
     Indication: ASTHMA
  4. THEOPHYLLINE [Concomitant]
     Indication: ASTHMA
  5. GLIBENCLAMIDE [Concomitant]
     Indication: GESTATIONAL DIABETES
  6. GABAPENTIN [Concomitant]
     Indication: NEURALGIA
  7. PERCOCET [Concomitant]
     Indication: PROCEDURAL PAIN
  8. IBUPROFEN [Concomitant]
     Indication: PROCEDURAL PAIN

REACTIONS (2)
  - Gestational diabetes [Unknown]
  - Exposure during pregnancy [Unknown]
